FAERS Safety Report 12265349 (Version 1)
Quarter: 2016Q2

REPORT INFORMATION
  Report Type: Spontaneous
  Country: CO (occurrence: CO)
  Receive Date: 20160413
  Receipt Date: 20160413
  Transmission Date: 20160815
  Serious: Yes (Other)
  Sender: FDA-Public Use
  Company Number: CO-ASTRAZENECA-2016SE38265

PATIENT
  Age: 84 Year
  Sex: Female

DRUGS (7)
  1. ROSUVASTATIN. [Concomitant]
     Active Substance: ROSUVASTATIN
     Indication: INFARCTION
     Route: 048
  2. ASA [Concomitant]
     Active Substance: ASPIRIN
     Indication: INFARCTION
     Route: 048
  3. ASA [Concomitant]
     Active Substance: ASPIRIN
     Indication: STENT PLACEMENT
     Route: 048
  4. METOPROLOL SUCCINATE. [Concomitant]
     Active Substance: METOPROLOL SUCCINATE
     Indication: STENT PLACEMENT
     Route: 048
  5. METOPROLOL SUCCINATE. [Concomitant]
     Active Substance: METOPROLOL SUCCINATE
     Indication: INFARCTION
     Route: 048
  6. BRILINTA [Suspect]
     Active Substance: TICAGRELOR
     Route: 048
  7. ROSUVASTATIN. [Concomitant]
     Active Substance: ROSUVASTATIN
     Indication: STENT PLACEMENT
     Route: 048

REACTIONS (2)
  - Haematuria [Unknown]
  - Rhabdomyolysis [Recovering/Resolving]
